FAERS Safety Report 8998692 (Version 2)
Quarter: 2013Q1

REPORT INFORMATION
  Report Type: Spontaneous
  Country: JP (occurrence: JP)
  Receive Date: 20130103
  Receipt Date: 20130107
  Transmission Date: 20140127
  Serious: Yes (Hospitalization, Other)
  Sender: FDA-Public Use
  Company Number: JP-JNJFOC-20121214296

PATIENT
  Sex: 0

DRUGS (5)
  1. DOXORUBICIN [Suspect]
     Indication: PERIPHERAL T-CELL LYMPHOMA UNSPECIFIED
     Dosage: DAYS 1-2, }30 MINUTS
     Route: 042
  2. DOXORUBICIN [Suspect]
     Indication: PERIPHERAL T-CELL LYMPHOMA UNSPECIFIED
     Dosage: DAYS 1-2, }30 MINUTS
     Route: 042
  3. CYCLOPHOSPHAMIDE [Suspect]
     Indication: PERIPHERAL T-CELL LYMPHOMA UNSPECIFIED
     Dosage: COURSE 1, 750 MG/M2, DAY 1; COURSE 2, 500 MG/M2, DAYS 1-2;??AND COURSE 3, 750 MG/M2, DAYS 1-2.
     Route: 042
  4. VINCRISTINE [Suspect]
     Indication: PERIPHERAL T-CELL LYMPHOMA UNSPECIFIED
     Dosage: 1.4 MG/M2, DAY 1, MAX 2 MG/BODY
     Route: 065
  5. PREDNISONE [Suspect]
     Indication: PERIPHERAL T-CELL LYMPHOMA UNSPECIFIED
     Dosage: DAY 1-5
     Route: 048

REACTIONS (3)
  - Gastrointestinal disorder [Recovered/Resolved]
  - Leukopenia [Unknown]
  - Neutropenia [Unknown]
